FAERS Safety Report 9010992 (Version 2)
Quarter: 2013Q1

REPORT INFORMATION
  Report Type: Spontaneous
  Country: CA (occurrence: CA)
  Receive Date: 20130111
  Receipt Date: 20130117
  Transmission Date: 20140127
  Serious: Yes (Other)
  Sender: FDA-Public Use
  Company Number: PHHY2012CA045796

PATIENT
  Sex: Male
  Weight: 104 kg

DRUGS (16)
  1. GILENYA [Suspect]
     Indication: RELAPSING-REMITTING MULTIPLE SCLEROSIS
     Dosage: 0.5 MG, QD
     Route: 048
     Dates: start: 20120326, end: 20121204
  2. DIVALPROEX [Concomitant]
     Dosage: 500 MG, QHS
     Route: 048
     Dates: start: 20110606
  3. DIVALPROEX [Concomitant]
     Dosage: 250 MG, QD
     Route: 048
     Dates: start: 20120702
  4. DOCUSATE SODIUM [Concomitant]
     Dosage: 2 DF, QHS
     Route: 048
     Dates: start: 20121207
  5. KETOCONAZOLE [Concomitant]
     Dosage: 1 DF, BIW
     Dates: start: 20110606
  6. PANTOPRAZOLE [Concomitant]
     Dosage: 1 DF, QD
     Route: 048
     Dates: start: 20120621
  7. QUETIAPINE [Concomitant]
     Dosage: 1 DF, QD
     Route: 048
     Dates: start: 20111130
  8. TERBINAFINE [Concomitant]
     Dosage: 1 DF, QD
     Dates: start: 20121212
  9. VITAMIN C [Concomitant]
     Dosage: 1 DF, QD
     Route: 048
     Dates: start: 20110606
  10. ACETAMINOPHEN [Concomitant]
     Dosage: 2 DF, QID
     Route: 048
     Dates: start: 20120117
  11. VITAMIN D3 [Concomitant]
     Dosage: 1 DF, QD
     Route: 048
     Dates: start: 20120404
  12. TOPIQUE JAUNE [Concomitant]
  13. CLOTRIMAZOLE [Concomitant]
     Dosage: 1 DF, BID
     Route: 061
     Dates: start: 20110606
  14. OXAZEPAM [Concomitant]
     Dosage: 0.5 DF, QHS
     Route: 048
     Dates: start: 20110921
  15. METRONIDAZOLE [Concomitant]
     Dosage: 1 DF, QID
     Route: 048
     Dates: start: 20121202
  16. VIAGRA [Concomitant]
     Indication: ERECTILE DYSFUNCTION

REACTIONS (6)
  - Bipolar disorder [Unknown]
  - Paraphilia [Unknown]
  - Libido increased [Unknown]
  - Cystitis [Recovered/Resolved]
  - Erythema [Unknown]
  - Depressed mood [Unknown]
